FAERS Safety Report 13791077 (Version 2)
Quarter: 2019Q2

REPORT INFORMATION
  Report Type: Spontaneous
  Country: GB (occurrence: GB)
  Receive Date: 20170725
  Receipt Date: 20190403
  Transmission Date: 20190711
  Serious: Yes (Life-Threatening, Hospitalization, Disabling)
  Sender: FDA-Public Use
  Company Number: GB-PFIZER INC-955332

PATIENT
  Age: 66 Year
  Sex: Male

DRUGS (8)
  1. AMITRIPTYLLIN [Concomitant]
     Active Substance: AMITRIPTYLINE HYDROCHLORIDE
  2. ALLOPURINOL. [Concomitant]
     Active Substance: ALLOPURINOL
  3. METHOTREXATE SODIUM. [Suspect]
     Active Substance: METHOTREXATE SODIUM
     Indication: RHEUMATOID ARTHRITIS
     Dosage: 20 MG, FREQ: 1 WEEK; INTERVAL: 1
     Route: 048
     Dates: start: 20110516
  4. ERYTHROMYCIN. [Suspect]
     Active Substance: ERYTHROMYCIN
     Indication: WOUND INFECTION
     Dosage: 250 MG, FREQ: 1 DAY; INTERVAL: 4
     Route: 048
     Dates: start: 20110524, end: 20110602
  5. PREDNISOLONE. [Concomitant]
     Active Substance: PREDNISOLONE
  6. LEFLUNOMIDE. [Suspect]
     Active Substance: LEFLUNOMIDE
     Indication: SERONEGATIVE ARTHRITIS
     Dosage: 10 MG, UNK
     Route: 048
     Dates: start: 20110427, end: 20110603
  7. DIHYDROCODEINE [Concomitant]
     Active Substance: DIHYDROCODEINE
  8. ATENOLOL. [Concomitant]
     Active Substance: ATENOLOL

REACTIONS (11)
  - Respiratory failure [Recovered/Resolved]
  - Lethargy [Unknown]
  - Infarction [Recovered/Resolved with Sequelae]
  - Dyspnoea [Unknown]
  - General physical health deterioration [Unknown]
  - Hepatic failure [Recovered/Resolved with Sequelae]
  - Coagulopathy [Recovered/Resolved]
  - Vasculitic rash [Recovered/Resolved with Sequelae]
  - Delirium [Recovered/Resolved]
  - Hepatic function abnormal [Recovering/Resolving]
  - Acute kidney injury [Recovered/Resolved]

NARRATIVE: CASE EVENT DATE: 20110603
